FAERS Safety Report 21217578 (Version 1)
Quarter: 2022Q3

REPORT INFORMATION
  Report Type: Spontaneous
  Country: US (occurrence: US)
  Receive Date: 20220816
  Receipt Date: 20220816
  Transmission Date: 20221027
  Serious: No
  Sender: FDA-Public Use
  Company Number: US-JNJFOC-20220819730

PATIENT
  Age: 83 Year
  Sex: Male

DRUGS (5)
  1. ERLEADA [Suspect]
     Active Substance: APALUTAMIDE
     Indication: Prostate cancer metastatic
     Route: 048
     Dates: start: 20201029
  2. DOCETAXEL [Concomitant]
     Active Substance: DOCETAXEL
  3. LOVASTATIN [Concomitant]
     Active Substance: LOVASTATIN
  4. CASODEX [Concomitant]
     Active Substance: BICALUTAMIDE
     Dates: start: 20220729
  5. LUPRON DEPOT-PED [Concomitant]
     Active Substance: LEUPROLIDE ACETATE

REACTIONS (2)
  - Insomnia [Unknown]
  - Prostatic specific antigen increased [Recovered/Resolved]
